FAERS Safety Report 11516669 (Version 1)
Quarter: 2015Q3

REPORT INFORMATION
  Report Type: Spontaneous
  Country: US (occurrence: None)
  Receive Date: 20150916
  Receipt Date: 20150916
  Transmission Date: 20151125
  Serious: Yes (Death)
  Sender: FDA-Public Use
  Company Number: None

PATIENT
  Age: 75 Year
  Sex: Female

DRUGS (1)
  1. SILDENAFIL CITRATE 20MG GREENSTONE [Suspect]
     Active Substance: SILDENAFIL CITRATE
     Indication: PULMONARY ARTERIAL HYPERTENSION
     Dosage: 20MG 4 TAB 3 TIMES DAIL ORAL
     Route: 048
     Dates: start: 20130122, end: 20150817

REACTIONS (1)
  - Death [None]

NARRATIVE: CASE EVENT DATE: 20150915
